FAERS Safety Report 6689189-1 (Version None)
Quarter: 2010Q2

REPORT INFORMATION
  Report Type: 
  Country: None (occurrence: None)
  Receive Date: 20100420
  Receipt Date: 20100203
  Transmission Date: 20101027
  Serious: No
  Sender: FDA-Public Use
  Company Number: US-ALLERGAN-0915637US

PATIENT
  Sex: Female

DRUGS (3)
  1. LATISSE [Suspect]
     Dosage: UNK
     Route: 061
     Dates: start: 20091101
  2. EYELASH DYE [Concomitant]
  3. LIPITOR [Concomitant]

REACTIONS (1)
  - MADAROSIS [None]
